FAERS Safety Report 24745968 (Version 1)
Quarter: 2024Q4

REPORT INFORMATION
  Report Type: Report from Study
  Country: DE (occurrence: DE)
  Receive Date: 20241218
  Receipt Date: 20241218
  Transmission Date: 20250115
  Serious: No
  Sender: ROCHE
  Company Number: DE-ROCHE-10000157449

PATIENT
  Age: 34 Year
  Sex: Male

DRUGS (1)
  1. OCREVUS [Suspect]
     Active Substance: OCRELIZUMAB
     Indication: Multiple sclerosis
     Route: 065
     Dates: start: 20230328

REACTIONS (3)
  - Rash [Recovered/Resolved]
  - Varicella zoster virus infection [Recovered/Resolved]
  - Skin bacterial infection [Recovered/Resolved]

NARRATIVE: CASE EVENT DATE: 20231018
